FAERS Safety Report 19082567 (Version 1)
Quarter: 2021Q2

REPORT INFORMATION
  Report Type: Spontaneous
  Country: MA (occurrence: MA)
  Receive Date: 20210401
  Receipt Date: 20210401
  Transmission Date: 20210717
  Serious: Yes (Life-Threatening, Hospitalization, Other)
  Sender: FDA-Public Use
  Company Number: MA-STRIDES ARCOLAB LIMITED-2021SP003686

PATIENT
  Age: 48 Year
  Sex: Female

DRUGS (2)
  1. IBUPROFEN. [Suspect]
     Active Substance: IBUPROFEN
     Indication: ARTHRALGIA
     Dosage: 200 MILLIGRAM, PER DAY (INCREASED DOSE)
     Route: 065
  2. OMEPRAZOLE. [Suspect]
     Active Substance: OMEPRAZOLE
     Indication: ARTHRALGIA
     Dosage: 20 MILLIGRAM, PER DAY
     Route: 065

REACTIONS (3)
  - Liver function test abnormal [Recovered/Resolved]
  - Normocytic anaemia [Recovered/Resolved]
  - Acute cutaneous lupus erythematosus [Recovered/Resolved]
